FAERS Safety Report 18104114 (Version 1)
Quarter: 2020Q3

REPORT INFORMATION
  Report Type: Spontaneous
  Country: US (occurrence: US)
  Receive Date: 20200801
  Receipt Date: 20200801
  Transmission Date: 20201103
  Serious: Yes (Hospitalization)
  Sender: FDA-Public Use
  Company Number: None

PATIENT
  Age: 38 Year
  Sex: Male

DRUGS (1)
  1. HUMIRA [Suspect]
     Active Substance: ADALIMUMAB
     Indication: CROHN^S DISEASE
     Route: 042
     Dates: start: 20200312, end: 20200710

REACTIONS (4)
  - Magnetic resonance imaging brain abnormal [None]
  - Dizziness [None]
  - Hypoaesthesia [None]
  - Therapy cessation [None]

NARRATIVE: CASE EVENT DATE: 20200710
